FAERS Safety Report 13537044 (Version 1)
Quarter: 2017Q2

REPORT INFORMATION
  Report Type: Spontaneous
  Country: NL (occurrence: NL)
  Receive Date: 20170511
  Receipt Date: 20170511
  Transmission Date: 20170830
  Serious: Yes (Hospitalization, Other)
  Sender: FDA-Public Use
  Company Number: NL-PFIZER INC-2017201371

PATIENT
  Age: 67 Year
  Sex: Male

DRUGS (5)
  1. SODIUM CHLORIDE. [Concomitant]
     Active Substance: SODIUM CHLORIDE
     Dosage: ANOTHER SALINE INFUSION (5 ML/H)
  2. NOREPINEPHRINE BITARTRATE. [Suspect]
     Active Substance: NOREPINEPHRINE BITARTRATE
     Indication: SPINAL SHOCK
     Dosage: 0.1 MG/ML (BY PROTOCOL, ADMINISTERED CONTINUOUSLY (5-6 ML/H)WITH A SYRINGE PUMP PERFUSOR SPACE)
  3. NOREPINEPHRINE BITARTRATE. [Suspect]
     Active Substance: NOREPINEPHRINE BITARTRATE
     Dosage: UNK (MAINTENANCE DOSE OF APPROXIMATELY 8 TO 10 UG/MIN)
  4. SODIUM CHLORIDE. [Concomitant]
     Active Substance: SODIUM CHLORIDE
     Dosage: SALINE CARRIER FLOW OF 10 ML/H
  5. PERINDOPRIL [Concomitant]
     Active Substance: PERINDOPRIL
     Dosage: 8 MG, DAILY

REACTIONS (2)
  - Hypertensive crisis [Unknown]
  - Overdose [Unknown]
